FAERS Safety Report 10384638 (Version 1)
Quarter: 2014Q3

REPORT INFORMATION
  Report Type: Spontaneous
  Country: US (occurrence: None)
  Receive Date: 20140813
  Receipt Date: 20140813
  Transmission Date: 20150326
  Serious: Yes (Other)
  Sender: FDA-Public Use
  Company Number: None

PATIENT
  Age: 74 Year
  Sex: Female
  Weight: 49.9 kg

DRUGS (8)
  1. VITAMINS [Concomitant]
     Active Substance: VITAMINS
  2. OYSTER SHELL W/VITAMIN D [Concomitant]
  3. RESTASIS [Concomitant]
     Active Substance: CYCLOSPORINE
  4. B-6 [Concomitant]
  5. VITAMIN B12 [Concomitant]
     Active Substance: CYANOCOBALAMIN
  6. ZOLEDRONIC ACID INJECTION [Suspect]
     Active Substance: ZOLEDRONIC ACID
     Indication: OSTEOPOROSIS
     Dosage: ONCE A YEAR  INFUSION
     Dates: start: 20140630, end: 20140630
  7. TOPROL XL [Concomitant]
     Active Substance: METOPROLOL SUCCINATE
  8. CLIDINIUM [Concomitant]
     Active Substance: CLIDINIUM

REACTIONS (1)
  - Paraesthesia [None]

NARRATIVE: CASE EVENT DATE: 20140630
